FAERS Safety Report 16707132 (Version 3)
Quarter: 2019Q3

REPORT INFORMATION
  Report Type: Spontaneous
  Country: IR (occurrence: IR)
  Receive Date: 20190815
  Receipt Date: 20190923
  Transmission Date: 20191004
  Serious: Yes (Other)
  Sender: FDA-Public Use
  Company Number: IR-PFIZER INC-2019346012

PATIENT
  Age: 2 Year
  Sex: Female

DRUGS (17)
  1. SIROLIMUS. [Suspect]
     Active Substance: SIROLIMUS
     Indication: AUTOIMMUNE DISORDER
     Dosage: UNK
  2. COTRIMOXAZOLE [Concomitant]
     Active Substance: SULFAMETHOXAZOLE\TRIMETHOPRIM
     Indication: DIARRHOEA
  3. CEFIXIME. [Concomitant]
     Active Substance: CEFIXIME
     Indication: INFECTION
     Dosage: UNK, EVERY 3 MONTHS (PERIODICALLY ALTER EVERY THREE MONTHS)
  4. CO AMOXYCLAV [Concomitant]
     Active Substance: AMOXICILLIN\CLAVULANIC ACID
     Indication: DIARRHOEA
  5. IMMUNOGLOBULIN HUMAN [Concomitant]
     Active Substance: HUMAN IMMUNOGLOBULIN G
     Indication: PANCYTOPENIA
  6. COTRIMOXAZOLE [Concomitant]
     Active Substance: SULFAMETHOXAZOLE\TRIMETHOPRIM
     Indication: INFECTION
     Dosage: UNK, EVERY 3 MONTHS (PERIODICALLY ALTER EVERY THREE MONTHS)
  7. CO AMOXYCLAV [Concomitant]
     Active Substance: AMOXICILLIN\CLAVULANIC ACID
     Indication: INFECTION
     Dosage: UNK, EVERY 3 MONTHS (PERIODICALLY ALTER EVERY THREE MONTHS)
  8. SIROLIMUS. [Suspect]
     Active Substance: SIROLIMUS
     Indication: AUTOIMMUNE ENTEROPATHY
  9. SIROLIMUS. [Suspect]
     Active Substance: SIROLIMUS
     Indication: VISCERAL LEISHMANIASIS
  10. CEFIXIME. [Concomitant]
     Active Substance: CEFIXIME
     Indication: DIARRHOEA
  11. IMMUNOGLOBULIN HUMAN [Concomitant]
     Active Substance: HUMAN IMMUNOGLOBULIN G
     Indication: INFECTION
     Dosage: UNK, MONTHLY (AFTER SIX MONTHS, THE IVIG DOSE INCREASED TO 2 GR/KG/MONTH)
     Route: 042
  12. IMMUNOGLOBULIN HUMAN [Concomitant]
     Active Substance: HUMAN IMMUNOGLOBULIN G
     Indication: VISCERAL LEISHMANIASIS
     Dosage: UNK,(1 GR/KG, HIGH DOSE)
     Route: 042
  13. IMMUNOGLOBULIN HUMAN [Concomitant]
     Active Substance: HUMAN IMMUNOGLOBULIN G
     Indication: AUTOIMMUNE ENTEROPATHY
  14. GLUCANTIME [Concomitant]
     Active Substance: MEGLUMINE ANTIMONIATE
     Indication: LEISHMANIASIS
     Dosage: UNK
  15. IMMUNOGLOBULIN HUMAN [Concomitant]
     Active Substance: HUMAN IMMUNOGLOBULIN G
     Indication: HEPATOSPLENOMEGALY
  16. SIROLIMUS. [Suspect]
     Active Substance: SIROLIMUS
     Indication: CHROMOSOMAL MUTATION
  17. METHYLPREDNISOLONE. [Concomitant]
     Active Substance: METHYLPREDNISOLONE
     Indication: PLATELET COUNT DECREASED
     Dosage: UNK (PERIODICALLY)

REACTIONS (4)
  - Visceral leishmaniasis [Recovering/Resolving]
  - Product use issue [Unknown]
  - Drug ineffective for unapproved indication [Unknown]
  - Off label use [Unknown]
